FAERS Safety Report 18370626 (Version 1)
Quarter: 2020Q4

REPORT INFORMATION
  Report Type: Spontaneous
  Country: KR (occurrence: KR)
  Receive Date: 20201012
  Receipt Date: 20201012
  Transmission Date: 20210114
  Serious: Yes (Other)
  Sender: FDA-Public Use
  Company Number: KR-RECORDATI RARE DISEASES INC.-KR-R13005-20-00132

PATIENT
  Age: 6 Year
  Sex: Female

DRUGS (7)
  1. DACTINOMYCIN [Suspect]
     Active Substance: DACTINOMYCIN
     Indication: PLEUROPULMONARY BLASTOMA
     Route: 065
     Dates: start: 20190428, end: 20190428
  2. DACTINOMYCIN [Suspect]
     Active Substance: DACTINOMYCIN
     Route: 065
     Dates: start: 201912
  3. IFOSFAMIDE. [Suspect]
     Active Substance: IFOSFAMIDE
     Indication: PLEUROPULMONARY BLASTOMA
     Route: 065
     Dates: start: 20190428
  4. CYCLOPHOSPHAMIDE. [Suspect]
     Active Substance: CYCLOPHOSPHAMIDE
     Indication: PLEUROPULMONARY BLASTOMA
     Route: 065
     Dates: start: 201912
  5. VINCRISTINE [Suspect]
     Active Substance: VINCRISTINE
     Indication: PLEUROPULMONARY BLASTOMA
     Route: 065
     Dates: start: 20190428
  6. DOXORUBICIN [Suspect]
     Active Substance: DOXORUBICIN
     Indication: PLEUROPULMONARY BLASTOMA
     Route: 065
     Dates: start: 20190428
  7. VINCRISTINE [Suspect]
     Active Substance: VINCRISTINE
     Route: 065
     Dates: start: 201912

REACTIONS (3)
  - Off label use [Unknown]
  - Neoplasm progression [Unknown]
  - Cachexia [Unknown]
